FAERS Safety Report 26093128 (Version 1)
Quarter: 2025Q4

REPORT INFORMATION
  Report Type: Report from Study
  Country: CR (occurrence: CR)
  Receive Date: 20251126
  Receipt Date: 20251126
  Transmission Date: 20260117
  Serious: Yes (Hospitalization)
  Sender: NOVARTIS
  Company Number: CR-002147023-NVSC2025CR181108

PATIENT
  Age: 66 Year
  Sex: Female

DRUGS (2)
  1. HYDROCHLOROTHIAZIDE\VALSARTAN [Suspect]
     Active Substance: HYDROCHLOROTHIAZIDE\VALSARTAN
     Indication: Hypertension
     Dosage: 80 MG, (80/12.5 MG) QD
     Route: 048
     Dates: start: 2005, end: 20251016
  2. HYDROCHLOROTHIAZIDE\VALSARTAN [Suspect]
     Active Substance: HYDROCHLOROTHIAZIDE\VALSARTAN
     Dosage: 80 MG, QD
     Route: 048
     Dates: start: 20251017

REACTIONS (4)
  - Thyroid neoplasm [Recovering/Resolving]
  - Thyroid mass [Recovering/Resolving]
  - Blood pressure decreased [Not Recovered/Not Resolved]
  - Vertigo [Not Recovered/Not Resolved]

NARRATIVE: CASE EVENT DATE: 20251001
